FAERS Safety Report 16231566 (Version 1)
Quarter: 2019Q2

REPORT INFORMATION
  Report Type: Spontaneous
  Country: JP (occurrence: JP)
  Receive Date: 20190424
  Receipt Date: 20190424
  Transmission Date: 20190711
  Serious: Yes (Death, Other)
  Sender: FDA-Public Use
  Company Number: JP-TAKEDA-2019TJP007635

PATIENT
  Age: 70 Year
  Sex: Female

DRUGS (1)
  1. TAKEPRON INTRAVENOUS 30MG. [Suspect]
     Active Substance: LANSOPRAZOLE
     Indication: GASTRIC ULCER HAEMORRHAGE
     Dosage: UNK
     Route: 042
     Dates: start: 2018

REACTIONS (2)
  - Oculomucocutaneous syndrome [Fatal]
  - Toxic epidermal necrolysis [Fatal]

NARRATIVE: CASE EVENT DATE: 2018
